FAERS Safety Report 9217215 (Version 3)
Quarter: 2013Q2

REPORT INFORMATION
  Report Type: Spontaneous
  Country: US (occurrence: None)
  Receive Date: 20130404
  Receipt Date: 20130510
  Transmission Date: 20140414
  Serious: Yes (Disabling, Other)
  Sender: FDA-Public Use
  Company Number: 1303-406

PATIENT
  Age: 86 Year
  Sex: Male

DRUGS (8)
  1. EYLEA [Suspect]
     Indication: AGE-RELATED MACULAR DEGENERATION
     Dosage: 2 MG, 1 IN 8 WK, INTRAVITREAL
     Dates: start: 20120516, end: 20130314
  2. EYLEA [Suspect]
     Indication: CHOROIDAL NEOVASCULARISATION
     Dosage: 2 MG, 1 IN 8 WK, INTRAVITREAL
     Dates: start: 20120516, end: 20130314
  3. HCTZ (HYDROCHLOROTHIAZIDE) [Concomitant]
  4. COUMADIN (WARFARIN SODIUM) [Concomitant]
  5. CARTIA XT (DILTIAZEM HYDROCHLORIDE) [Concomitant]
  6. VITAMIN D3 (COLECALCIFEROL) [Concomitant]
  7. ZOLEDRONIC (ZOLEDRONIC ACID) [Concomitant]
  8. CALCIUM (CALCIUM) [Concomitant]

REACTIONS (2)
  - Uveitis [None]
  - Visual acuity reduced [None]
